FAERS Safety Report 8720637 (Version 1)
Quarter: 2012Q4

REPORT INFORMATION
  Report Type: 
  Country: US (occurrence: US)
  Receive Date: 20120910
  Receipt Date: 20120910
  Transmission Date: 20130627
  Serious: Yes (Death, Hospitalization)
  Sender: FDA-Public Use
  Company Number: US-ROCHE-1099308

PATIENT
  Age: 56 Year
  Sex: Male

DRUGS (2)
  1. ACTIVASE [Suspect]
     Indication: MYOCARDIAL INFARCTION
     Route: 065
     Dates: start: 19940314
  2. HEPARIN [Concomitant]
     Route: 042

REACTIONS (1)
  - Ventricular fibrillation [Fatal]
